FAERS Safety Report 18713418 (Version 3)
Quarter: 2021Q1

REPORT INFORMATION
  Report Type: Spontaneous
  Country: US (occurrence: US)
  Receive Date: 20210107
  Receipt Date: 20210316
  Transmission Date: 20210419
  Serious: Yes (Other)
  Sender: FDA-Public Use
  Company Number: US-ELI_LILLY_AND_COMPANY-US202012013959

PATIENT
  Age: 72 Year
  Sex: Male
  Weight: 109.2 kg

DRUGS (11)
  1. TAMOXIFEN [Concomitant]
     Active Substance: TAMOXIFEN
  2. BAMLANIVIMAB 700MG [Suspect]
     Active Substance: BAMLANIVIMAB
     Indication: COVID-19
     Dosage: 700 MG, SINGLE
     Route: 041
     Dates: start: 20201206, end: 20201206
  3. NORCO [Concomitant]
     Active Substance: ACETAMINOPHEN\HYDROCODONE BITARTRATE
  4. ZINC. [Concomitant]
     Active Substance: ZINC
     Dosage: 220 MG, DAILY
     Route: 048
  5. LEVOTHYROXINE. [Concomitant]
     Active Substance: LEVOTHYROXINE
     Dosage: 75 UG, DAILY
     Route: 048
  6. METOPROLOL TARTRATE. [Concomitant]
     Active Substance: METOPROLOL TARTRATE
     Dosage: 25 MG, BID
     Route: 048
  7. XARELTO [Concomitant]
     Active Substance: RIVAROXABAN
  8. ALFUZOSIN [Concomitant]
     Active Substance: ALFUZOSIN
     Dosage: 10 MG, DAILY
     Route: 048
  9. CRESTOR [Concomitant]
     Active Substance: ROSUVASTATIN CALCIUM
     Dosage: 5 MG, DAILY
     Route: 048
  10. VITAMIN D3 [Concomitant]
     Active Substance: CHOLECALCIFEROL
     Dosage: 1000 INTERNATIONAL UNIT, DAILY
     Route: 048
  11. SENNA [SENNA ALEXANDRINA] [Concomitant]
     Active Substance: SENNA LEAF
     Dosage: 8.6 MG, DAILY
     Route: 048

REACTIONS (3)
  - Upper respiratory tract infection [Unknown]
  - COVID-19 [Unknown]
  - Chest pain [Unknown]

NARRATIVE: CASE EVENT DATE: 20210104
